FAERS Safety Report 15713746 (Version 1)
Quarter: 2018Q4

REPORT INFORMATION
  Report Type: Spontaneous
  Country: US (occurrence: US)
  Receive Date: 20181212
  Receipt Date: 20181212
  Transmission Date: 20190205
  Serious: No
  Sender: FDA-Public Use
  Company Number: US-BAYER-2018-225030

PATIENT
  Age: 44 Year
  Sex: Female

DRUGS (4)
  1. NEURONTIN [Concomitant]
     Active Substance: GABAPENTIN
  2. MAXIL [METOCLOPRAMIDE HYDROCHLORIDE] [Concomitant]
  3. ESTRADIOL. [Suspect]
     Active Substance: ESTRADIOL
     Dosage: UNK
     Route: 062
     Dates: start: 201812
  4. VERAPAMIL [Concomitant]
     Active Substance: VERAPAMIL HYDROCHLORIDE

REACTIONS (5)
  - Sleep disorder [Unknown]
  - Product physical issue [None]
  - Headache [Recovered/Resolved]
  - Drug ineffective [Unknown]
  - Poor quality product administered [None]
